FAERS Safety Report 5779179-5 (Version None)
Quarter: 2008Q2

REPORT INFORMATION
  Report Type: 
  Country: None (occurrence: None)
  Receive Date: 20080617
  Receipt Date: 20080611
  Transmission Date: 20081010
  Serious: Yes (Life-Threatening, Other)
  Sender: FDA-Public Use
  Company Number: GXKR2008DE04505

PATIENT
  Age: 85 Year
  Sex: Female
  Weight: 70 kg

DRUGS (3)
  1. TRAMADOL HCL [Suspect]
     Indication: PAIN
     Dosage: 150-175 MG, ORAL
     Route: 048
     Dates: start: 20080301
  2. DOXEPIN HCL [Concomitant]
  3. IBUPROFEN [Concomitant]

REACTIONS (1)
  - APNOEIC ATTACK [None]
